FAERS Safety Report 9731579 (Version 1)
Quarter: 2013Q4

REPORT INFORMATION
  Report Type: Spontaneous
  Country: US (occurrence: None)
  Receive Date: 20131204
  Receipt Date: 20131204
  Transmission Date: 20140711
  Serious: Yes (Disabling)
  Sender: FDA-Public Use
  Company Number: None

PATIENT
  Age: 67 Year
  Sex: Female
  Weight: 70.31 kg

DRUGS (1)
  1. LETROZOLE [Suspect]
     Indication: HORMONE THERAPY
     Dosage: 1 PILL; ONCE DAILY
     Route: 048
     Dates: start: 20131114, end: 20131124

REACTIONS (5)
  - Vertigo [None]
  - Bedridden [None]
  - Dizziness [None]
  - Balance disorder [None]
  - Asthenia [None]
